FAERS Safety Report 7206455-1 (Version None)
Quarter: 2011Q1

REPORT INFORMATION
  Report Type: 
  Country: None (occurrence: None)
  Receive Date: 20110103
  Receipt Date: 20101223
  Transmission Date: 20110831
  Serious: Yes (Hospitalization)
  Sender: FDA-Public Use
  Company Number: AT-SANOFI-AVENTIS-2010SA071292

PATIENT
  Age: 72 Year
  Sex: Male

DRUGS (22)
  1. LISINOPRIL [Concomitant]
     Route: 048
  2. MOTILIUM [Concomitant]
     Dates: start: 20101118
  3. BUSCOPAN [Concomitant]
     Dates: start: 20101118
  4. ELOXATIN [Suspect]
     Indication: GASTRIC CANCER
     Route: 041
     Dates: start: 20101118, end: 20101118
  5. SELOKEN [Concomitant]
     Route: 048
  6. BUSCOPAN [Concomitant]
     Dates: start: 20101119
  7. IRINOTECAN HCL [Suspect]
     Indication: GASTRIC CANCER
     Route: 041
     Dates: start: 20101118, end: 20101118
  8. BEVACIZUMAB [Suspect]
     Indication: GASTRIC CANCER
     Route: 041
     Dates: start: 20101118, end: 20101118
  9. PANTOPRAZOLE [Concomitant]
     Dates: start: 20101118
  10. NITROLINGUAL [Concomitant]
     Dosage: 1-3 BOOSTS
     Route: 048
  11. ELOXATIN [Suspect]
     Route: 041
     Dates: start: 20101130, end: 20101130
  12. SIMVASTATIN [Concomitant]
     Route: 048
  13. NOVOMIX [Concomitant]
  14. NOVOMIX [Concomitant]
  15. DALTEPARIN SODIUM [Concomitant]
     Dates: start: 20101117
  16. ASPIRIN [Concomitant]
     Route: 048
  17. AMLODIPINE [Concomitant]
     Route: 048
  18. ISOSORBIDE MONONITRATE [Concomitant]
     Route: 048
     Dates: start: 20101122
  19. IRINOTECAN HCL [Suspect]
     Route: 041
     Dates: start: 20101130, end: 20101130
  20. BEVACIZUMAB [Suspect]
     Route: 041
     Dates: start: 20101130, end: 20101130
  21. FORTECORTIN [Concomitant]
     Dates: start: 20101117
  22. NAVOBAN [Concomitant]
     Dates: start: 20101119

REACTIONS (4)
  - HAEMATOCHEZIA [None]
  - PYREXIA [None]
  - CHEST PAIN [None]
  - ANGINA PECTORIS [None]
